FAERS Safety Report 9098902 (Version 2)
Quarter: 2013Q1

REPORT INFORMATION
  Report Type: Spontaneous
  Country: AT (occurrence: AT)
  Receive Date: 20130213
  Receipt Date: 20130221
  Transmission Date: 20140127
  Serious: Yes (Other)
  Sender: FDA-Public Use
  Company Number: AT-PFIZER INC-2013053864

PATIENT
  Age: 61 Year
  Sex: Female
  Weight: 68 kg

DRUGS (8)
  1. XALKORI [Suspect]
     Indication: BRONCHIAL NEOPLASM
     Dosage: 250 MG, 2X/DAY
     Dates: start: 20130101
  2. XALKORI [Suspect]
     Dosage: 250 MG, 1X/DAY
     Dates: end: 20130122
  3. ACEMIN [Concomitant]
     Dosage: 10 MG, 1X/DAY
  4. LASIX [Concomitant]
     Dosage: 40 MG, 1X/DAY
  5. PANTOPRAZOLE SODIUM [Concomitant]
     Dosage: 40 MG, 2X/DAY
  6. THYREX [Concomitant]
     Dosage: 50 UG, 1X/DAY
  7. MAGNESIUM [Concomitant]
     Dosage: UNK
  8. NEUROBION [Concomitant]
     Dosage: UNK

REACTIONS (4)
  - Haematemesis [Not Recovered/Not Resolved]
  - Epistaxis [Not Recovered/Not Resolved]
  - Nausea [Unknown]
  - Decreased appetite [Unknown]
